FAERS Safety Report 4446847-7 (Version None)
Quarter: 2004Q3

REPORT INFORMATION
  Report Type: 
  Country: None (occurrence: None)
  Receive Date: 20040908
  Receipt Date: 20040824
  Transmission Date: 20050211
  Serious: Yes (Other)
  Sender: FDA-Public Use
  Company Number: 2004229788CA

PATIENT
  Age: 20 Year
  Sex: Female
  Weight: 53.1 kg

DRUGS (1)
  1. DEPO-PROVERA [Suspect]
     Indication: CONTRACEPTION
     Dosage: 150 MG/3 MONTH, 1ST INJ, INTRAMUSCULAR
     Route: 030
     Dates: start: 20030223, end: 20030223

REACTIONS (10)
  - ABDOMINAL PAIN [None]
  - AMENORRHOEA [None]
  - BLOOD PRESSURE DECREASED [None]
  - BREAST TENDERNESS [None]
  - DIZZINESS [None]
  - GALACTORRHOEA [None]
  - LOSS OF CONSCIOUSNESS [None]
  - MEDICATION ERROR [None]
  - MOOD SWINGS [None]
  - NAUSEA [None]
